FAERS Safety Report 8886426 (Version 1)
Quarter: 2012Q4

REPORT INFORMATION
  Report Type: 
  Country: US (occurrence: US)
  Receive Date: 20121105
  Receipt Date: 20121105
  Transmission Date: 20130627
  Serious: No
  Sender: FDA-Public Use
  Company Number: US-B.I. PHARMACEUTICALS,INC./RIDGEFIELD-2012-BP-27107BP

PATIENT
  Sex: Female
  Weight: 54 kg

DRUGS (1)
  1. SPIRIVA [Suspect]
     Indication: BRONCHITIS CHRONIC
     Dosage: 18 mcg
     Route: 055
     Dates: start: 2005

REACTIONS (2)
  - Visual acuity reduced [Not Recovered/Not Resolved]
  - Visual acuity reduced [Recovered/Resolved]
